FAERS Safety Report 10896321 (Version 3)
Quarter: 2018Q4

REPORT INFORMATION
  Report Type: Spontaneous
  Country: SE (occurrence: SE)
  Receive Date: 20150309
  Receipt Date: 20181130
  Transmission Date: 20190204
  Serious: Yes (Hospitalization, Disabling)
  Sender: FDA-Public Use
  Company Number: SE-AMGEN-SWESP2015020564

PATIENT
  Age: 83 Year
  Sex: Female

DRUGS (12)
  1. KALCIPOS [Concomitant]
     Active Substance: CALCIUM CARBONATE
     Dosage: UNK
  2. OXYNORM [Concomitant]
     Active Substance: OXYCODONE HYDROCHLORIDE
     Dosage: UNK
  3. ALENDRONIC ACID [Concomitant]
     Active Substance: ALENDRONIC ACID
     Dosage: UNK
     Dates: start: 201309
  4. PROLIA [Suspect]
     Active Substance: DENOSUMAB
     Indication: OSTEOPOROSIS
     Dosage: UNK
     Route: 065
     Dates: start: 201301, end: 201307
  5. ALVEDON [Concomitant]
     Active Substance: ACETAMINOPHEN
     Dosage: UNK
  6. ZOMETA [Suspect]
     Active Substance: ZOLEDRONIC ACID
     Indication: OSTEOPOROSIS
     Dosage: UNK
     Route: 042
     Dates: start: 20100112, end: 201301
  7. PRIMODIUM [Concomitant]
     Dosage: UNK
  8. ATACAND [Concomitant]
     Active Substance: CANDESARTAN CILEXETIL
     Dosage: UNK
  9. PREDNISOLONE. [Concomitant]
     Active Substance: PREDNISOLONE
     Dosage: UNK
  10. FURIX [Concomitant]
     Active Substance: FUROSEMIDE
     Dosage: UNK
  11. ETALPHA [Concomitant]
     Active Substance: ALFACALCIDOL
     Dosage: UNK
  12. CITALOPRAM [Concomitant]
     Active Substance: CITALOPRAM HYDROBROMIDE
     Dosage: UNK

REACTIONS (2)
  - Osteonecrosis [Not Recovered/Not Resolved]
  - Jaw fracture [Not Recovered/Not Resolved]

NARRATIVE: CASE EVENT DATE: 20130726
